FAERS Safety Report 17049441 (Version 2)
Quarter: 2021Q2

REPORT INFORMATION
  Report Type: Spontaneous
  Country: US (occurrence: US)
  Receive Date: 20191119
  Receipt Date: 20210410
  Transmission Date: 20210716
  Serious: Yes (Other)
  Sender: FDA-Public Use
  Company Number: US-SHILPA MEDICARE LIMITED-SML-US-2019-00257

PATIENT
  Age: 62 Year
  Sex: Female

DRUGS (16)
  1. IMATINIB, UNKNOWN [Suspect]
     Active Substance: IMATINIB
     Route: 065
  2. IMATINIB, UNKNOWN [Suspect]
     Active Substance: IMATINIB
     Dosage: IMATINIB INDUCTION OF DRUG TOLERANCE PROTOCOL ON DAY 19 TO 21.
     Route: 065
  3. NILOTINIB [Suspect]
     Active Substance: NILOTINIB
     Indication: GASTROINTESTINAL STROMAL TUMOUR
     Route: 065
     Dates: start: 20150103, end: 20150108
  4. IMATINIB, UNKNOWN [Suspect]
     Active Substance: IMATINIB
     Dosage: IMATINIB INDUCTION OF DRUG TOLERANCE PROTOCOL ON DAY 22 TO 24.
     Route: 065
  5. IMATINIB, UNKNOWN [Suspect]
     Active Substance: IMATINIB
     Dosage: IMATINIB INDUCTION OF DRUG TOLERANCE PROTOCOL ON DAY 7 TO 9.
     Route: 065
  6. IMATINIB, UNKNOWN [Suspect]
     Active Substance: IMATINIB
     Dosage: IMATINIB INDUCTION OF DRUG TOLERANCE PROTOCOL ON DAY 25 TO 27.
     Route: 065
  7. IMATINIB, UNKNOWN [Suspect]
     Active Substance: IMATINIB
     Dosage: IMATINIB INDUCTION OF DRUG TOLERANCE PROTOCOL ON DAY  4 TO 6.
     Route: 065
  8. IMATINIB, UNKNOWN [Suspect]
     Active Substance: IMATINIB
     Dosage: IMATINIB INDUCTION OF DRUG TOLERANCE PROTOCOL ON DAY GREATER THAN 28.
     Route: 065
  9. IMATINIB, UNKNOWN [Suspect]
     Active Substance: IMATINIB
     Indication: GASTROINTESTINAL STROMAL TUMOUR
     Route: 065
     Dates: start: 20121107
  10. IMATINIB, UNKNOWN [Suspect]
     Active Substance: IMATINIB
     Dosage: IMATINIB INDUCTION OF DRUG TOLERANCE PROTOCOL ON DAY 1 TO 3.
     Route: 065
  11. IMATINIB, UNKNOWN [Suspect]
     Active Substance: IMATINIB
     Dosage: IMATINIB INDUCTION OF DRUG TOLERANCE PROTOCOL ON DAY 10 TO 12
     Route: 065
     Dates: start: 20121107
  12. IMATINIB, UNKNOWN [Suspect]
     Active Substance: IMATINIB
     Route: 065
     Dates: start: 20130105
  13. IMATINIB, UNKNOWN [Suspect]
     Active Substance: IMATINIB
     Dosage: DAILY
     Route: 065
  14. IMATINIB, UNKNOWN [Suspect]
     Active Substance: IMATINIB
     Dosage: IMATINIB INDUCTION OF DRUG TOLERANCE PROTOCOL ON DAY 13 TO 15.
     Route: 065
  15. IMATINIB, UNKNOWN [Suspect]
     Active Substance: IMATINIB
     Dosage: IMATINIB INDUCTION OF DRUG TOLERANCE PROTOCOL ON DAY 16 TO 18.
     Route: 065
  16. IMATINIB, UNKNOWN [Suspect]
     Active Substance: IMATINIB
     Route: 065

REACTIONS (8)
  - Eczema [Recovered/Resolved]
  - Rash pruritic [Recovered/Resolved]
  - Disease progression [Unknown]
  - Periorbital swelling [Recovered/Resolved]
  - Rash maculo-papular [Recovered/Resolved]
  - Periorbital oedema [Recovered/Resolved]
  - Rash [Recovered/Resolved]
  - Disease progression [Unknown]

NARRATIVE: CASE EVENT DATE: 20130117
